FAERS Safety Report 25839982 (Version 1)
Quarter: 2025Q3

REPORT INFORMATION
  Report Type: Report from Study
  Country: IN (occurrence: IN)
  Receive Date: 20250924
  Receipt Date: 20250924
  Transmission Date: 20251020
  Serious: Yes (Death)
  Sender: ROCHE
  Company Number: IN-ROCHE-10000283501

PATIENT
  Age: 60 Year
  Sex: Male

DRUGS (7)
  1. TECENTRIQ [Suspect]
     Active Substance: ATEZOLIZUMAB
     Indication: Small cell lung cancer
     Route: 042
     Dates: start: 20241023
  2. IRINOTECAN [Concomitant]
     Active Substance: IRINOTECAN
  3. OPTINEURON [Concomitant]
  4. FOSAPREPITANT [Concomitant]
     Active Substance: FOSAPREPITANT
  5. OLANZAPINE [Concomitant]
     Active Substance: OLANZAPINE
  6. METOCLOPRAMIDE HYDROCHLORIDE [Concomitant]
     Active Substance: METOCLOPRAMIDE HYDROCHLORIDE
  7. CALPOL [Concomitant]
     Active Substance: ACETAMINOPHEN

REACTIONS (2)
  - Off label use [Unknown]
  - Death [Fatal]

NARRATIVE: CASE EVENT DATE: 20250423
